FAERS Safety Report 6999643-0 (Version None)
Quarter: 2010Q3

REPORT INFORMATION
  Report Type: 
  Country: None (occurrence: None)
  Receive Date: 20100920
  Receipt Date: 20100706
  Transmission Date: 20110219
  Serious: No
  Sender: FDA-Public Use
  Company Number: US-ASTRAZENECA-2010SE31372

PATIENT
  Age: 12355 Day
  Sex: Female
  Weight: 59 kg

DRUGS (2)
  1. SEROQUEL XR [Suspect]
     Indication: BIPOLAR DISORDER
     Route: 048
  2. SEROQUEL XR [Suspect]
     Route: 048
     Dates: start: 20070101

REACTIONS (7)
  - CHILLS [None]
  - DIARRHOEA [None]
  - DRUG DOSE OMISSION [None]
  - HYPERHIDROSIS [None]
  - NAUSEA [None]
  - PAIN [None]
  - VOMITING [None]
